FAERS Safety Report 5240683-X (Version None)
Quarter: 2007Q1

REPORT INFORMATION
  Report Type: 
  Country: None (occurrence: None)
  Receive Date: 20061208
  Receipt Date: 20060331
  Transmission Date: 20070707
  Serious: Yes (Other)
  Sender: FDA-Public Use
  Company Number: 2006UW05739

PATIENT
  Age: 76 Year
  Sex: Male
  Weight: 83.914 kg

DRUGS (5)
  1. CRESTOR [Suspect]
     Indication: BLOOD CHOLESTEROL INCREASED
     Dosage: 10 MG DAILY PO
     Route: 048
  2. ALTACE [Concomitant]
  3. GLUCOTROL [Concomitant]
  4. ASPIRIN [Concomitant]
  5. RED YEAST RICE [Concomitant]

REACTIONS (4)
  - ERYTHEMA [None]
  - MUSCLE SPASMS [None]
  - PRURITUS [None]
  - SKIN EXFOLIATION [None]
